FAERS Safety Report 15757955 (Version 1)
Quarter: 2018Q4

REPORT INFORMATION
  Report Type: Spontaneous
  Country: GB (occurrence: GB)
  Receive Date: 20181225
  Receipt Date: 20181225
  Transmission Date: 20190205
  Serious: Yes (Congenital Anomaly, Other)
  Sender: FDA-Public Use
  Company Number: GB-ACCORD-096795

PATIENT

DRUGS (2)
  1. CYCLIZINE [Concomitant]
     Active Substance: CYCLIZINE
     Indication: HYPEREMESIS GRAVIDARUM
     Route: 064
  2. ONDANSETRON [Suspect]
     Active Substance: ONDANSETRON
     Indication: HYPEREMESIS GRAVIDARUM
     Route: 064

REACTIONS (2)
  - Congenital hand malformation [Unknown]
  - Foetal exposure during pregnancy [Unknown]
